FAERS Safety Report 15711702 (Version 1)
Quarter: 2018Q4

REPORT INFORMATION
  Report Type: Spontaneous
  Country: GB (occurrence: GB)
  Receive Date: 20181212
  Receipt Date: 20181212
  Transmission Date: 20190205
  Serious: Yes (Disabling, Other)
  Sender: FDA-Public Use
  Company Number: GB-AUROBINDO-AUR-APL-2018-059224

PATIENT
  Age: 86 Year
  Sex: Male
  Weight: 73.02 kg

DRUGS (2)
  1. LACTULOSE. [Concomitant]
     Active Substance: LACTULOSE
     Indication: PRODUCT USED FOR UNKNOWN INDICATION
     Dosage: UNK
     Route: 065
  2. TERBINAFINE TABLET [Suspect]
     Active Substance: TERBINAFINE
     Indication: NAIL DISCOLOURATION
     Dosage: 250 MILLIGRAM, DAILY
     Route: 048
     Dates: start: 20141101, end: 20170501

REACTIONS (4)
  - Headache [Recovered/Resolved]
  - Ageusia [Not Recovered/Not Resolved]
  - Dizziness [Recovered/Resolved]
  - Anosmia [Not Recovered/Not Resolved]

NARRATIVE: CASE EVENT DATE: 20150101
